FAERS Safety Report 8277306-1 (Version None)
Quarter: 2012Q2

REPORT INFORMATION
  Report Type: 
  Country: None (occurrence: None)
  Receive Date: 20120412
  Receipt Date: 20120402
  Transmission Date: 20120825
  Serious: Yes (Death, Hospitalization)
  Sender: FDA-Public Use
  Company Number: IT-GLAXOSMITHKLINE-B0776367A

PATIENT
  Sex: Male

DRUGS (5)
  1. MINOCYCLINE HCL [Suspect]
     Indication: FOLLICULITIS
     Dosage: 50MG PER DAY
     Route: 048
     Dates: start: 20111113, end: 20111115
  2. IRESSA [Suspect]
     Indication: ADENOCARCINOMA
     Route: 048
     Dates: start: 20110120, end: 20111115
  3. INDOMETHACIN [Concomitant]
     Indication: MUSCULOSKELETAL PAIN
     Route: 048
  4. ARIXTRA [Suspect]
     Indication: DEEP VEIN THROMBOSIS
     Route: 058
     Dates: start: 20110120, end: 20111115
  5. RABEPRAZOLE SODIUM [Suspect]
     Indication: PROPHYLAXIS AGAINST GASTROINTESTINAL ULCER
     Route: 048
     Dates: start: 20110120, end: 20111115

REACTIONS (15)
  - NON-SMALL CELL LUNG CANCER [None]
  - DYSPNOEA [None]
  - VOMITING [None]
  - RESPIRATORY FAILURE [None]
  - BLOOD BILIRUBIN INCREASED [None]
  - AMYLASE INCREASED [None]
  - THROMBOCYTOPENIA [None]
  - CENTRAL NERVOUS SYSTEM LESION [None]
  - CLOSTRIDIAL INFECTION [None]
  - ASTHENIA [None]
  - NAUSEA [None]
  - BRAIN INJURY [None]
  - HAEMOPTYSIS [None]
  - DISEASE PROGRESSION [None]
  - TACHYPNOEA [None]
